FAERS Safety Report 6899026-8 (Version None)
Quarter: 2010Q3

REPORT INFORMATION
  Report Type: 
  Country: None (occurrence: None)
  Receive Date: 20100802
  Receipt Date: 20071220
  Transmission Date: 20110219
  Serious: No
  Sender: FDA-Public Use
  Company Number: US-PFIZER INC-2007106795

PATIENT
  Sex: Male
  Weight: 77.1 kg

DRUGS (4)
  1. LYRICA [Suspect]
     Indication: FIBROMYALGIA
     Route: 048
     Dates: start: 20071204
  2. NAPROXEN [Concomitant]
  3. REGLAN [Concomitant]
  4. PREVACID [Concomitant]

REACTIONS (6)
  - ABNORMAL BEHAVIOUR [None]
  - DISTURBANCE IN ATTENTION [None]
  - DIZZINESS [None]
  - DRUG INEFFECTIVE [None]
  - LETHARGY [None]
  - SOMNOLENCE [None]
